FAERS Safety Report 4865289-3 (Version None)
Quarter: 2005Q4

REPORT INFORMATION
  Report Type: 
  Country: None (occurrence: None)
  Receive Date: 20051223
  Receipt Date: 20051214
  Transmission Date: 20060501
  Serious: Yes (Other)
  Sender: FDA-Public Use
  Company Number: FR-SANOFI-SYNTHELABO-A01200508732

PATIENT
  Age: 59 Year
  Sex: Male

DRUGS (8)
  1. PLAVIX [Suspect]
     Indication: MYOCARDIAL INFARCTION
     Route: 048
     Dates: start: 20050601
  2. PLAVIX [Suspect]
     Indication: CORONARY ARTERIAL STENT INSERTION
     Route: 048
     Dates: start: 20050601
  3. ZOCOR [Suspect]
     Indication: MYOCARDIAL INFARCTION
     Route: 048
  4. ZOCOR [Suspect]
     Indication: CORONARY ARTERIAL STENT INSERTION
     Route: 048
  5. KARDEGIC [Suspect]
     Indication: MYOCARDIAL INFARCTION
     Route: 048
  6. KARDEGIC [Suspect]
     Indication: CORONARY ARTERIAL STENT INSERTION
     Route: 048
  7. TRIATEC [Suspect]
     Indication: MYOCARDIAL INFARCTION
     Dosage: UNK
     Route: 048
  8. TRIATEC [Suspect]
     Indication: CORONARY ARTERIAL STENT INSERTION
     Dosage: UNK
     Route: 048

REACTIONS (2)
  - BLOOD BILIRUBIN INCREASED [None]
  - JAUNDICE [None]
